FAERS Safety Report 4556998-4 (Version None)
Quarter: 2005Q1

REPORT INFORMATION
  Report Type: 
  Country: None (occurrence: None)
  Receive Date: 20050118
  Receipt Date: 20050106
  Transmission Date: 20050727
  Serious: Yes (Death)
  Sender: FDA-Public Use
  Company Number: 2004-0007846

PATIENT
  Age: 54 Year
  Sex: Male

DRUGS (3)
  1. VIREAD [Suspect]
     Dates: start: 20041027
  2. COMBIVIR [Concomitant]
  3. EFAVIRENZ (EFAVIRENZ) [Concomitant]

REACTIONS (11)
  - APATHY [None]
  - CORONARY ARTERY DISEASE [None]
  - GAMMA-GLUTAMYLTRANSFERASE INCREASED [None]
  - GASTRITIS [None]
  - HAEMOGLOBIN DECREASED [None]
  - HIATUS HERNIA [None]
  - MOBILITY DECREASED [None]
  - NEUTROPHIL COUNT INCREASED [None]
  - PROTEIN TOTAL DECREASED [None]
  - RENAL IMPAIRMENT [None]
  - SUDDEN DEATH [None]
